FAERS Safety Report 5828852-9 (Version None)
Quarter: 2008Q3

REPORT INFORMATION
  Report Type: 
  Country: None (occurrence: None)
  Receive Date: 20080731
  Receipt Date: 20080722
  Transmission Date: 20090109
  Serious: Yes (Hospitalization)
  Sender: FDA-Public Use
  Company Number: CA-JNJFOC-20080406573

PATIENT
  Sex: Female
  Weight: 60.5 kg

DRUGS (5)
  1. REMICADE [Suspect]
     Route: 042
  2. REMICADE [Suspect]
     Route: 042
  3. REMICADE [Suspect]
     Route: 042
  4. REMICADE [Suspect]
     Indication: UVEITIS
     Route: 042
  5. BENADRYL [Concomitant]
     Indication: PREMEDICATION
     Route: 048

REACTIONS (7)
  - BLOOD PRESSURE DECREASED [None]
  - FURUNCLE [None]
  - HERPES ZOSTER [None]
  - NAUSEA [None]
  - PYREXIA [None]
  - SEPTIC SHOCK [None]
  - VOMITING [None]
